FAERS Safety Report 16191256 (Version 1)
Quarter: 2019Q2

REPORT INFORMATION
  Report Type: Spontaneous
  Country: US (occurrence: US)
  Receive Date: 20190412
  Receipt Date: 20190412
  Transmission Date: 20190711
  Serious: Yes (Hospitalization)
  Sender: FDA-Public Use
  Company Number: US-BIOTEST PHARMACEUTICALS CORPORATION-US-2019ADM000005

PATIENT
  Age: 18 Year
  Sex: Female

DRUGS (2)
  1. HUMAN IMMUNOGLOBULIN [Suspect]
     Active Substance: HUMAN IMMUNOGLOBULIN G
     Indication: PRODUCT USED FOR UNKNOWN INDICATION
     Dosage: 130G (1G/KG)
     Route: 042
     Dates: start: 20160310
  2. ELTROMBOPAG [Concomitant]
     Active Substance: ELTROMBOPAG
     Indication: PRODUCT USED FOR UNKNOWN INDICATION
     Dosage: UNK
     Dates: start: 20160310

REACTIONS (2)
  - Protein total increased [Unknown]
  - Hypernatraemia [Unknown]

NARRATIVE: CASE EVENT DATE: 201603
